FAERS Safety Report 24366745 (Version 2)
Quarter: 2024Q3

REPORT INFORMATION
  Report Type: Spontaneous
  Country: JP (occurrence: JP)
  Receive Date: 20240926
  Receipt Date: 20240930
  Transmission Date: 20241017
  Serious: Yes (Other)
  Sender: BRISTOL MYERS SQUIBB
  Company Number: JP-TAIHO-2024-008820

PATIENT
  Age: 5 Decade
  Sex: Female

DRUGS (1)
  1. ABRAXANE [Suspect]
     Active Substance: PACLITAXEL
     Indication: Triple negative breast cancer
     Dosage: DAILY DOSE: 260 MILLIGRAM(S)/SQ. METER
     Route: 041

REACTIONS (1)
  - Pneumocystis jirovecii pneumonia [Unknown]
